FAERS Safety Report 18147908 (Version 3)
Quarter: 2020Q3

REPORT INFORMATION
  Report Type: Report from Study
  Country: US (occurrence: US)
  Receive Date: 20200813
  Receipt Date: 20200916
  Transmission Date: 20201103
  Serious: Yes (Hospitalization)
  Sender: FDA-Public Use
  Company Number: US-JNJFOC-20200811193

PATIENT
  Age: 3 Decade
  Sex: Female
  Weight: 48.58 kg

DRUGS (3)
  1. 5?ASA [Concomitant]
     Active Substance: MESALAMINE
     Route: 054
  2. BUDESONIDE. [Concomitant]
     Active Substance: BUDESONIDE
  3. INFLIXIMAB, RECOMBINANT [Suspect]
     Active Substance: INFLIXIMAB
     Indication: INFLAMMATORY BOWEL DISEASE
     Route: 042
     Dates: start: 20060522

REACTIONS (2)
  - Hyperemesis gravidarum [Recovered/Resolved with Sequelae]
  - Crohn^s disease [Recovered/Resolved with Sequelae]

NARRATIVE: CASE EVENT DATE: 202006
